FAERS Safety Report 9021036 (Version 1)
Quarter: 2013Q1

REPORT INFORMATION
  Report Type: Spontaneous
  Country: US (occurrence: US)
  Receive Date: 20130119
  Receipt Date: 20130119
  Transmission Date: 20140127
  Serious: No
  Sender: FDA-Public Use
  Company Number: US-ALLERGAN-1204487US

PATIENT
  Sex: Female

DRUGS (1)
  1. BOTOX COSMETIC [Suspect]
     Indication: SKIN WRINKLING
     Dosage: UNK
     Dates: start: 2002, end: 2002

REACTIONS (4)
  - Inflammation [Not Recovered/Not Resolved]
  - Eyelid ptosis [Unknown]
  - Hypoaesthesia [Unknown]
  - Hypoaesthesia [Unknown]
